FAERS Safety Report 10157579 (Version 2)
Quarter: 2014Q2

REPORT INFORMATION
  Report Type: Spontaneous
  Country: US (occurrence: US)
  Receive Date: 20140507
  Receipt Date: 20140612
  Transmission Date: 20141212
  Serious: Yes (Other)
  Sender: FDA-Public Use
  Company Number: US-PFIZER INC-2014122735

PATIENT
  Age: 60 Year
  Sex: Female

DRUGS (3)
  1. LIPITOR [Suspect]
     Indication: LOW DENSITY LIPOPROTEIN INCREASED
     Dosage: 10 MG, 1X/DAY
     Route: 048
     Dates: start: 200003, end: 200104
  2. LIPITOR [Suspect]
     Indication: CARDIOVASCULAR EVENT PROPHYLAXIS
     Dosage: 20 MG, 1X/DAY
     Route: 048
     Dates: start: 200104, end: 200410
  3. ASPIRIN [Concomitant]
     Indication: CARDIAC DISORDER
     Dosage: 1 DF, DAILY
     Dates: start: 200001

REACTIONS (1)
  - Type 2 diabetes mellitus [Not Recovered/Not Resolved]
